FAERS Safety Report 18601834 (Version 1)
Quarter: 2020Q4

REPORT INFORMATION
  Report Type: Spontaneous
  Country: US (occurrence: US)
  Receive Date: 20201210
  Receipt Date: 20201210
  Transmission Date: 20210114
  Serious: No
  Sender: FDA-Public Use
  Company Number: US-PFIZER INC-2020485269

PATIENT
  Age: 55 Year
  Sex: Female

DRUGS (1)
  1. NIVESTYM [Suspect]
     Active Substance: FILGRASTIM-AAFI
     Dosage: UNK, (FIRST TIME 2 DOSES, SECOND TIME 2 DOSES, NOW THIRD TIME)
     Dates: start: 2020

REACTIONS (8)
  - Bone pain [Unknown]
  - Arthralgia [Unknown]
  - Wheezing [Unknown]
  - Off label use [Unknown]
  - Dyspnoea [Unknown]
  - Abdominal pain [Unknown]
  - Drug hypersensitivity [Unknown]
  - Cough [Unknown]
